FAERS Safety Report 7429048-X (Version None)
Quarter: 2011Q2

REPORT INFORMATION
  Report Type: 
  Country: None (occurrence: None)
  Receive Date: 20110421
  Receipt Date: 20110413
  Transmission Date: 20111010
  Serious: Yes (Hospitalization, Other)
  Sender: FDA-Public Use
  Company Number: US-ABBOTT-11P-163-0712957-00

PATIENT
  Sex: Female
  Weight: 100.79 kg

DRUGS (9)
  1. FISH OIL [Concomitant]
     Indication: SUPPLEMENTATION THERAPY
     Route: 048
  2. HUMIRA [Suspect]
     Indication: RHEUMATOID ARTHRITIS
     Route: 058
     Dates: start: 20090220, end: 20100901
  3. HUMIRA [Suspect]
     Route: 058
     Dates: start: 20110101
  4. HUMIRA [Suspect]
     Route: 058
     Dates: start: 20100101, end: 20110101
  5. DIOVAN HCT [Concomitant]
     Indication: BLOOD PRESSURE INCREASED
     Dosage: 320/25
     Route: 048
  6. GARLIC [Concomitant]
     Indication: MEDICAL DIET
     Route: 048
  7. METHOTREXATE [Concomitant]
     Indication: RHEUMATOID ARTHRITIS
     Route: 048
  8. AMLODIPINE [Concomitant]
     Indication: BLOOD PRESSURE INCREASED
     Route: 048
  9. CRANBERRY [Concomitant]
     Indication: MEDICAL DIET
     Route: 048

REACTIONS (4)
  - ARTHRALGIA [None]
  - GOITRE [None]
  - NASOPHARYNGITIS [None]
  - MUSCULOSKELETAL STIFFNESS [None]
